FAERS Safety Report 13656077 (Version 1)
Quarter: 2017Q2

REPORT INFORMATION
  Report Type: Spontaneous
  Country: US (occurrence: US)
  Receive Date: 20170615
  Receipt Date: 20170615
  Transmission Date: 20170830
  Serious: No
  Sender: FDA-Public Use
  Company Number: US-LEXICON PHARMACEUTICALS, INC-17-1606-00304

PATIENT
  Age: 46 Year
  Sex: Male

DRUGS (14)
  1. OMEPRAZOLE. [Concomitant]
     Active Substance: OMEPRAZOLE
  2. TELOTRISTAT ETHYL [Suspect]
     Active Substance: TELOTRISTAT ETHYL
     Indication: GASTROINTESTINAL NEOPLASM
     Route: 048
     Dates: start: 20170414, end: 2017
  3. LOSARTAN. [Concomitant]
     Active Substance: LOSARTAN
  4. FENOFIBRATE. [Concomitant]
     Active Substance: FENOFIBRATE
  5. POTASSIUM [Concomitant]
     Active Substance: POTASSIUM
  6. LEVOXYL [Concomitant]
     Active Substance: LEVOTHYROXINE SODIUM
  7. SANDOSTATIN [Concomitant]
     Active Substance: OCTREOTIDE ACETATE
  8. ZOLEDRONIC [Concomitant]
     Active Substance: ZOLEDRONIC ACID
  9. LASIX [Concomitant]
     Active Substance: FUROSEMIDE
  10. TRAZODONE [Concomitant]
     Active Substance: TRAZODONE HYDROCHLORIDE
  11. INJECTAFER [Concomitant]
     Active Substance: FERRIC CARBOXYMALTOSE
  12. TEMAZEPAM. [Concomitant]
     Active Substance: TEMAZEPAM
  13. OXYCODONE [Concomitant]
     Active Substance: OXYCODONE
  14. MS CONTIN [Concomitant]
     Active Substance: MORPHINE SULFATE

REACTIONS (1)
  - Drug ineffective [Unknown]

NARRATIVE: CASE EVENT DATE: 20170414
